FAERS Safety Report 12640022 (Version 1)
Quarter: 2016Q3

REPORT INFORMATION
  Report Type: Spontaneous
  Country: US (occurrence: None)
  Receive Date: 20160809
  Receipt Date: 20160809
  Transmission Date: 20161109
  Serious: No
  Sender: FDA-Public Use
  Company Number: None

PATIENT

DRUGS (3)
  1. IBUPROFEN. [Suspect]
     Active Substance: IBUPROFEN
  2. MICONAZOLE. [Suspect]
     Active Substance: MICONAZOLE
  3. AMOXICILLIN. [Suspect]
     Active Substance: AMOXICILLIN

REACTIONS (4)
  - Vaginal infection [None]
  - Wrong drug administered [None]
  - Drug dispensed to wrong patient [None]
  - Condition aggravated [None]
